FAERS Safety Report 9467897 (Version 2)
Quarter: 2013Q3

REPORT INFORMATION
  Report Type: Spontaneous
  Country: US (occurrence: US)
  Receive Date: 20130821
  Receipt Date: 20130917
  Transmission Date: 20140515
  Serious: Yes (Other)
  Sender: FDA-Public Use
  Company Number: PHEH2013US017697

PATIENT
  Age: 91 Year
  Sex: Female

DRUGS (4)
  1. EXELON PATCH [Suspect]
     Indication: DEMENTIA ALZHEIMER^S TYPE
     Dosage: 9.5 MG/24 HRS
     Route: 062
     Dates: start: 20120918, end: 20130817
  2. EXELON PATCH [Suspect]
     Dosage: UNK UKN, UNK
     Route: 062
  3. NAMENDA [Concomitant]
     Indication: DEMENTIA ALZHEIMER^S TYPE
     Dosage: 10 MG, BID
  4. NORVASC [Concomitant]
     Indication: HYPERTENSION
     Dosage: UNK UKN, UNK

REACTIONS (2)
  - Renal disorder [Unknown]
  - Renal impairment [Not Recovered/Not Resolved]
